FAERS Safety Report 6882322-8 (Version None)
Quarter: 2010Q3

REPORT INFORMATION
  Report Type: 
  Country: None (occurrence: None)
  Receive Date: 20100729
  Receipt Date: 20091230
  Transmission Date: 20110219
  Serious: No
  Sender: FDA-Public Use
  Company Number: US-MYLANLABS-2009S1017897

PATIENT
  Age: 63 Year
  Sex: Female
  Weight: 71.22 kg

DRUGS (1)
  1. LEVOTHYROXINE SODIUM [Suspect]
     Indication: THYROID HORMONE REPLACEMENT THERAPY
     Route: 048
     Dates: start: 20090929

REACTIONS (7)
  - APHASIA [None]
  - BLOOD THYROID STIMULATING HORMONE INCREASED [None]
  - COGNITIVE DISORDER [None]
  - DRUG INEFFECTIVE [None]
  - GAIT DISTURBANCE [None]
  - LETHARGY [None]
  - MENTAL IMPAIRMENT [None]
